FAERS Safety Report 24432783 (Version 2)
Quarter: 2025Q1

REPORT INFORMATION
  Report Type: Report from Study
  Country: US (occurrence: US)
  Receive Date: 20241014
  Receipt Date: 20250102
  Transmission Date: 20250409
  Serious: Yes (Hospitalization)
  Sender: BAYER HEALTHCARE PHARMACEUTICALS INC.
  Company Number: US-BAYER-2024A141278

PATIENT
  Age: 54 Year
  Sex: Female
  Weight: 47.166 kg

DRUGS (19)
  1. ADEMPAS [Suspect]
     Active Substance: RIOCIGUAT
     Indication: Pulmonary arterial hypertension
     Dates: start: 20230119
  2. ADEMPAS [Suspect]
     Active Substance: RIOCIGUAT
     Indication: Pulmonary arterial hypertension
     Dosage: 2.5 MG, TID
     Route: 048
  3. ADEMPAS [Suspect]
     Active Substance: RIOCIGUAT
     Indication: Pulmonary arterial hypertension
     Dosage: 2.5 MG, TID
     Route: 048
     Dates: start: 20241206
  4. ANORO ELLIPTA [Concomitant]
     Active Substance: UMECLIDINIUM BROMIDE\VILANTEROL TRIFENATATE
  5. FUROSEMIDE [Concomitant]
     Active Substance: FUROSEMIDE
  6. ACETAMINOPHEN\HYDROCODONE [Concomitant]
     Active Substance: ACETAMINOPHEN\HYDROCODONE
  7. SYNTHROID [Concomitant]
     Active Substance: LEVOTHYROXINE SODIUM
  8. CEFTRIAXONE [Concomitant]
     Active Substance: CEFTRIAXONE
  9. ELIQUIS [Concomitant]
     Active Substance: APIXABAN
  10. ALBUTEROL SULFATE [Concomitant]
     Active Substance: ALBUTEROL SULFATE
  11. BIOFREEZE [Concomitant]
     Active Substance: MENTHOL
  12. OPSUMIT [Concomitant]
     Active Substance: MACITENTAN
  13. BENZONATATE [Concomitant]
     Active Substance: BENZONATATE
  14. CALCIUM [Concomitant]
     Active Substance: CALCIUM
  15. OXYGEN [Concomitant]
     Active Substance: OXYGEN
  16. OMEPRAZOLE [Concomitant]
     Active Substance: OMEPRAZOLE
  17. DEXAMETHASONE [Concomitant]
     Active Substance: DEXAMETHASONE
  18. POTASSIUM CHLORIDE [Concomitant]
     Active Substance: POTASSIUM CHLORIDE
  19. TYVASO [Concomitant]
     Active Substance: TREPROSTINIL

REACTIONS (3)
  - Illness [Not Recovered/Not Resolved]
  - Nasopharyngitis [None]
  - Nasal congestion [None]

NARRATIVE: CASE EVENT DATE: 20240930
